FAERS Safety Report 9704130 (Version 1)
Quarter: 2013Q4

REPORT INFORMATION
  Report Type: Spontaneous
  Country: US (occurrence: US)
  Receive Date: 20131122
  Receipt Date: 20131122
  Transmission Date: 20140711
  Serious: No
  Sender: FDA-Public Use
  Company Number: US-GLAXOSMITHKLINE-A1019601A

PATIENT
  Age: 10 Year
  Sex: Male

DRUGS (2)
  1. WELLBUTRIN [Suspect]
     Dosage: 300MG SINGLE DOSE
     Route: 048
     Dates: start: 20130404, end: 20130404
  2. UNSPECIFIED [Suspect]
     Dates: start: 20130404

REACTIONS (2)
  - Headache [Recovered/Resolved]
  - Dizziness [Unknown]
